FAERS Safety Report 6789091-0 (Version None)
Quarter: 2010Q2

REPORT INFORMATION
  Report Type: 
  Country: None (occurrence: None)
  Receive Date: 20100623
  Receipt Date: 20080915
  Transmission Date: 20101027
  Serious: Yes (Other)
  Sender: FDA-Public Use
  Company Number: US-PFIZER INC-2008031676

PATIENT
  Sex: Female
  Weight: 66 kg

DRUGS (3)
  1. DEPO-PROVERA SUSPENSION/INJ [Suspect]
     Indication: CONTRACEPTION
     Dosage: FIRST INJECTION
     Dates: start: 19950101, end: 19950101
  2. DEPO-PROVERA SUSPENSION/INJ [Suspect]
     Dosage: LAST INJECTION
     Dates: start: 20070901, end: 20070901
  3. SYNTHROID [Concomitant]
     Indication: THYROID DISORDER

REACTIONS (4)
  - BONE PAIN [None]
  - BREAST CANCER FEMALE [None]
  - OSTEOPOROSIS [None]
  - VITAMIN D DEFICIENCY [None]
